FAERS Safety Report 16739092 (Version 1)
Quarter: 2019Q3

REPORT INFORMATION
  Report Type: Report from Study
  Country: None (occurrence: AT)
  Receive Date: 20190826
  Receipt Date: 20190826
  Transmission Date: 20191005
  Serious: Yes (Hospitalization)
  Sender: FDA-Public Use
  Company Number: AT-ABBVIE-19K-009-2899772-00

PATIENT
  Age: 78 Year
  Sex: Male

DRUGS (1)
  1. DUODOPA [Suspect]
     Active Substance: CARBIDOPA\LEVODOPA
     Indication: PARKINSON^S DISEASE
     Dosage: MD: 3ML, CR DAYTIME: 1.8ML, CR NIGHTTIME: 0.9ML, ED: 1ML
     Route: 050
     Dates: start: 20190605

REACTIONS (1)
  - Immobile [Recovering/Resolving]

NARRATIVE: CASE EVENT DATE: 2019
